FAERS Safety Report 24240384 (Version 2)
Quarter: 2024Q3

REPORT INFORMATION
  Report Type: Report from Study
  Country: US (occurrence: US)
  Receive Date: 20240822
  Receipt Date: 20240906
  Transmission Date: 20241016
  Serious: Yes (Other)
  Sender: PHARMING GROUP
  Company Number: US-PHARMING-PHAUS2024000715

PATIENT

DRUGS (1)
  1. RUCONEST [Suspect]
     Active Substance: CONESTAT ALFA
     Indication: Hereditary angioedema with normal C1 esterase inhibitor
     Dosage: 4200 IU, AS NEEDED
     Route: 042
     Dates: start: 202309

REACTIONS (2)
  - Central venous catheterisation [Recovered/Resolved]
  - Insurance issue [Unknown]
